FAERS Safety Report 16275651 (Version 1)
Quarter: 2019Q2

REPORT INFORMATION
  Report Type: Report from Study
  Country: US (occurrence: US)
  Receive Date: 20190506
  Receipt Date: 20190506
  Transmission Date: 20190711
  Serious: Yes (Hospitalization, Other)
  Sender: FDA-Public Use
  Company Number: US-GILEAD-2019-0405601

PATIENT
  Age: 60 Year
  Sex: Male

DRUGS (3)
  1. TYVASO [Suspect]
     Active Substance: TREPROSTINIL
     Indication: PULMONARY HYPERTENSION
     Dosage: UNK
     Route: 065
     Dates: start: 2018
  2. XARELTO [Concomitant]
     Active Substance: RIVAROXABAN
  3. AMBRISENTAN [Suspect]
     Active Substance: AMBRISENTAN
     Indication: PULMONARY HYPERTENSION
     Dosage: 10 MG, QD
     Route: 065
     Dates: start: 20160805

REACTIONS (6)
  - Sinus congestion [Not Recovered/Not Resolved]
  - Condition aggravated [Not Recovered/Not Resolved]
  - Peripheral vascular disorder [Unknown]
  - Pulmonary hypertension [Not Recovered/Not Resolved]
  - Dizziness postural [Not Recovered/Not Resolved]
  - Nasal congestion [Not Recovered/Not Resolved]
